FAERS Safety Report 4345313-7 (Version None)
Quarter: 2004Q2

REPORT INFORMATION
  Report Type: 
  Country: None (occurrence: None)
  Receive Date: 20040423
  Receipt Date: 20040414
  Transmission Date: 20050107
  Serious: Yes (Death)
  Sender: FDA-Public Use
  Company Number: JP-GLAXOSMITHKLINE-B0329981A

PATIENT
  Age: 64 Year
  Sex: Female

DRUGS (2)
  1. ALKERAN [Suspect]
     Indication: MULTIPLE MYELOMA
     Route: 048
  2. PREDNISOLONE [Concomitant]
     Indication: MULTIPLE MYELOMA
     Route: 048

REACTIONS (3)
  - ACUTE MEGAKARYOCYTIC LEUKAEMIA [None]
  - CEREBRAL HAEMORRHAGE [None]
  - MYELOFIBROSIS [None]
